FAERS Safety Report 7860282-0 (Version None)
Quarter: 2011Q4

REPORT INFORMATION
  Report Type: 
  Country: None (occurrence: None)
  Receive Date: 20111027
  Receipt Date: 20111017
  Transmission Date: 20120403
  Serious: Yes (Life-Threatening, Hospitalization)
  Sender: FDA-Public Use
  Company Number: EG-SANOFI-AVENTIS-2011SA069592

PATIENT
  Age: 15 Year
  Sex: Male

DRUGS (3)
  1. LANTUS [Suspect]
     Dosage: DOSE:35 UNIT(S)
  2. LANTUS [Suspect]
     Dosage: DOSE:25 UNIT(S)
  3. LANTUS [Suspect]
     Dosage: DOSE:30 UNIT(S)
     Route: 058
     Dates: start: 20100701

REACTIONS (2)
  - HYPERGLYCAEMIA [None]
  - KETOACIDOSIS [None]
